FAERS Safety Report 10929622 (Version 2)
Quarter: 2015Q2

REPORT INFORMATION
  Report Type: Spontaneous
  Country: FR (occurrence: FR)
  Receive Date: 20150319
  Receipt Date: 20150514
  Transmission Date: 20150821
  Serious: Yes (Life-Threatening, Hospitalization)
  Sender: FDA-Public Use
  Company Number: FR-TEVA-547727ISR

PATIENT
  Age: 2 Month
  Sex: Male

DRUGS (1)
  1. KETOCONAZOLE TEVA 2 % [Suspect]
     Active Substance: KETOCONAZOLE
     Indication: FUNGAL INFECTION
     Route: 048
     Dates: start: 20150226

REACTIONS (5)
  - Incorrect route of drug administration [Unknown]
  - Malaise [Recovering/Resolving]
  - Respiratory arrest [Recovered/Resolved]
  - Foaming at mouth [Unknown]
  - Drug administered to patient of inappropriate age [Unknown]

NARRATIVE: CASE EVENT DATE: 20150226
